FAERS Safety Report 14340629 (Version 4)
Quarter: 2019Q1

REPORT INFORMATION
  Report Type: Spontaneous
  Country: US (occurrence: US)
  Receive Date: 20180101
  Receipt Date: 20190110
  Transmission Date: 20190417
  Serious: Yes (Other)
  Sender: FDA-Public Use
  Company Number: US-ASTRAZENECA-2017SF32738

PATIENT
  Age: 20028 Day
  Sex: Female

DRUGS (3)
  1. METFORMIN [Concomitant]
     Active Substance: METFORMIN HYDROCHLORIDE
  2. BYETTA [Suspect]
     Active Substance: EXENATIDE
     Indication: DIABETES MELLITUS
     Route: 065
  3. BYETTA [Suspect]
     Active Substance: EXENATIDE
     Indication: DIABETES MELLITUS
     Dosage: TWICE A DAY
     Route: 065

REACTIONS (9)
  - Decreased appetite [Unknown]
  - Fatigue [Unknown]
  - Paraesthesia [Unknown]
  - Ankle fracture [Unknown]
  - Product dose omission [Unknown]
  - Orthopnoea [Unknown]
  - Abdominal pain upper [Unknown]
  - Dizziness [Unknown]
  - Device malfunction [Unknown]

NARRATIVE: CASE EVENT DATE: 20180809
